FAERS Safety Report 4334770-8 (Version None)
Quarter: 2004Q2

REPORT INFORMATION
  Report Type: 
  Country: None (occurrence: None)
  Receive Date: 20040405
  Receipt Date: 20040323
  Transmission Date: 20050107
  Serious: Yes (Hospitalization)
  Sender: FDA-Public Use
  Company Number: STA-AE-04-MTX-115

PATIENT
  Age: 55 Year
  Sex: Male

DRUGS (5)
  1. METHOTREXATE [Suspect]
     Indication: RHEUMATOID ARTHRITIS
     Dosage: 15 MG 1X PER 1 WK, ORAL
     Route: 048
     Dates: start: 19980403, end: 20040127
  2. PREDNISONE [Suspect]
     Indication: RHEUMATOID ARTHRITIS
     Dosage: 7 MG 1X PER 1 DAY, ORAL
     Route: 048
     Dates: start: 19980312
  3. FOLIC ACID [Concomitant]
  4. CELEBREX [Concomitant]
  5. REMICADE [Suspect]
     Indication: RHEUMATOID ARTHRITIS
     Dosage: 500 MG 1X PER 6 WK, INTRAVENOUS
     Route: 042
     Dates: start: 20020610, end: 20040127

REACTIONS (1)
  - PULMONARY MASS [None]
